FAERS Safety Report 25189330 (Version 1)
Quarter: 2025Q2

REPORT INFORMATION
  Report Type: Spontaneous
  Country: US (occurrence: US)
  Receive Date: 20250411
  Receipt Date: 20250411
  Transmission Date: 20250716
  Serious: Yes (Hospitalization, Other)
  Sender: CHEPLAPHARM
  Company Number: US-ASTRAZENECA-202503GLO027934US

PATIENT
  Age: 56 Year
  Sex: Male

DRUGS (7)
  1. CLONAZEPAM [Suspect]
     Active Substance: CLONAZEPAM
     Indication: Major depression
     Dosage: 1 MG/D AS NEEDED?DAILY DOSE: 1 MILLIGRAM
  2. QUETIAPINE [Suspect]
     Active Substance: QUETIAPINE
     Indication: Major depression
  3. VORTIOXETINE [Suspect]
     Active Substance: VORTIOXETINE
     Indication: Major depression
     Dosage: 20 MILLIGRAM, QD?DAILY DOSE: 20 MILLIGRAM
  4. ALLOPURINOL [Suspect]
     Active Substance: ALLOPURINOL
     Indication: Major depression
  5. HYDROXYZINE [Concomitant]
     Active Substance: HYDROXYZINE HYDROCHLORIDE
  6. METHOHEXITAL [Concomitant]
     Active Substance: METHOHEXITAL
  7. SUCCINYLCHOLINE [Concomitant]
     Active Substance: SUCCINYLCHOLINE

REACTIONS (2)
  - Serotonin syndrome [Recovered/Resolved]
  - Off label use [Recovered/Resolved]
